FAERS Safety Report 15984212 (Version 1)
Quarter: 2019Q1

REPORT INFORMATION
  Report Type: Spontaneous
  Country: US (occurrence: US)
  Receive Date: 20190220
  Receipt Date: 20190220
  Transmission Date: 20190418
  Serious: Yes (Other)
  Sender: FDA-Public Use
  Company Number: US-HORIZON-VIM-0100-2019

PATIENT
  Age: 65 Year
  Sex: Female

DRUGS (16)
  1. ACIPHEX [Suspect]
     Active Substance: RABEPRAZOLE SODIUM
     Route: 065
     Dates: start: 2011, end: 2018
  2. FAMVIR [Concomitant]
     Active Substance: FAMCICLOVIR
  3. SODIUM BICARBONATE. [Concomitant]
     Active Substance: SODIUM BICARBONATE
  4. PREVACID [Suspect]
     Active Substance: LANSOPRAZOLE
     Route: 065
     Dates: start: 2011, end: 2018
  5. VITAMIN D2 [Concomitant]
     Active Substance: ERGOCALCIFEROL
  6. INDERAL [Concomitant]
     Active Substance: PROPRANOLOL HYDROCHLORIDE
  7. VICODIN [Concomitant]
     Active Substance: ACETAMINOPHEN\HYDROCODONE BITARTRATE
  8. VIMOVO [Suspect]
     Active Substance: ESOMEPRAZOLE MAGNESIUM\NAPROXEN
     Indication: PRODUCT USED FOR UNKNOWN INDICATION
     Route: 048
     Dates: start: 2011, end: 2018
  9. FLEXERIL [Concomitant]
     Active Substance: CYCLOBENZAPRINE HYDROCHLORIDE
  10. PRILOSEC [Suspect]
     Active Substance: OMEPRAZOLE MAGNESIUM
     Route: 048
     Dates: start: 2011, end: 2018
  11. PRILOSEC [Suspect]
     Active Substance: OMEPRAZOLE MAGNESIUM
     Route: 048
     Dates: start: 20160712
  12. PREVACID [Suspect]
     Active Substance: LANSOPRAZOLE
     Route: 065
  13. NORVASC [Concomitant]
     Active Substance: AMLODIPINE BESYLATE
  14. CYMBALTA [Concomitant]
     Active Substance: DULOXETINE HYDROCHLORIDE
  15. NORCO [Concomitant]
     Active Substance: ACETAMINOPHEN\HYDROCODONE BITARTRATE
  16. ZOCOR [Concomitant]
     Active Substance: SIMVASTATIN

REACTIONS (1)
  - Chronic kidney disease [Unknown]

NARRATIVE: CASE EVENT DATE: 20160712
